FAERS Safety Report 14686557 (Version 1)
Quarter: 2018Q1

REPORT INFORMATION
  Report Type: Spontaneous
  Country: US (occurrence: US)
  Receive Date: 20180326
  Receipt Date: 20180326
  Transmission Date: 20180509
  Serious: Yes (Hospitalization)
  Sender: FDA-Public Use
  Company Number: None

PATIENT
  Age: 59 Year
  Sex: Female
  Weight: 82.7 kg

DRUGS (11)
  1. SODIUM CHLORIDE. [Concomitant]
     Active Substance: SODIUM CHLORIDE
  2. CARVEDILOL. [Concomitant]
     Active Substance: CARVEDILOL
  3. PRATROPIUM-ALBUTEROL [Concomitant]
  4. MULTIVITAMIN [Concomitant]
     Active Substance: VITAMINS
  5. RIBAVIRIN 600 [Suspect]
     Active Substance: RIBAVIRIN
     Indication: HEPATITIS C
     Route: 048
     Dates: start: 20170717, end: 20171018
  6. NALOXONE [Concomitant]
     Active Substance: NALOXONE
  7. LANSOPRAZOLE. [Concomitant]
     Active Substance: LANSOPRAZOLE
  8. ACETAMINOPHEN. [Concomitant]
     Active Substance: ACETAMINOPHEN
  9. RAMELTEON [Concomitant]
     Active Substance: RAMELTEON
  10. EPCLUSA [Suspect]
     Active Substance: SOFOSBUVIR\VELPATASVIR
     Indication: HEPATITIS C
     Dosage: DOSE 400/100
     Route: 048
     Dates: start: 20170717, end: 20171018
  11. TRAMADOL. [Concomitant]
     Active Substance: TRAMADOL

REACTIONS (6)
  - Dehydration [None]
  - Blood potassium increased [None]
  - Acute kidney injury [None]
  - Gastrointestinal haemorrhage [None]
  - Varicose vein [None]
  - Prophylaxis [None]

NARRATIVE: CASE EVENT DATE: 20170918
